FAERS Safety Report 18485758 (Version 1)
Quarter: 2020Q4

REPORT INFORMATION
  Report Type: Spontaneous
  Country: US (occurrence: US)
  Receive Date: 20201110
  Receipt Date: 20201110
  Transmission Date: 20210114
  Serious: No
  Sender: FDA-Public Use
  Company Number: None

PATIENT
  Sex: Female

DRUGS (1)
  1. SIMPONI [Suspect]
     Active Substance: GOLIMUMAB
     Indication: RHEUMATOID ARTHRITIS
     Dosage: OTHER DOSE:50MG/0.5ML;OTHER FREQUENCY:EVERY 28 DAYS;?
     Route: 058
     Dates: start: 20200825

REACTIONS (1)
  - Drug ineffective [None]
